FAERS Safety Report 13913469 (Version 1)
Quarter: 2017Q3

REPORT INFORMATION
  Report Type: Spontaneous
  Country: US (occurrence: US)
  Receive Date: 20170828
  Receipt Date: 20170828
  Transmission Date: 20171127
  Serious: Yes (Hospitalization)
  Sender: FDA-Public Use
  Company Number: US-ROCHE-1135319

PATIENT
  Sex: Male

DRUGS (1)
  1. NUTROPIN [Suspect]
     Active Substance: SOMATROPIN
     Indication: PRODUCT USED FOR UNKNOWN INDICATION
     Route: 065
     Dates: start: 201103

REACTIONS (10)
  - Pyrexia [Unknown]
  - Onychoclasis [Unknown]
  - Nausea [Unknown]
  - Urticaria [Unknown]
  - Headache [Unknown]
  - Constipation [Unknown]
  - Hypersomnia [Unknown]
  - Arthralgia [Unknown]
  - Vomiting [Unknown]
  - Nail disorder [Unknown]
